FAERS Safety Report 9565260 (Version 1)
Quarter: 2013Q3

REPORT INFORMATION
  Report Type: Report from Study
  Country: AR (occurrence: AR)
  Receive Date: 20130930
  Receipt Date: 20130930
  Transmission Date: 20140515
  Serious: Yes (Hospitalization, Other)
  Sender: FDA-Public Use
  Company Number: PHHY2013AR108774

PATIENT
  Sex: Female

DRUGS (1)
  1. DIOVAN [Suspect]
     Indication: HYPERTENSION
     Dosage: 1 DF, (160 MG) DAILY
     Route: 048
     Dates: start: 20130812

REACTIONS (5)
  - Nervousness [Recovered/Resolved]
  - Peripheral nerve lesion [Unknown]
  - Paraesthesia [Not Recovered/Not Resolved]
  - Epistaxis [Recovered/Resolved]
  - Insomnia [Recovered/Resolved]
